FAERS Safety Report 10761912 (Version 1)
Quarter: 2015Q1

REPORT INFORMATION
  Report Type: Spontaneous
  Country: IT (occurrence: IT)
  Receive Date: 20150204
  Receipt Date: 20150204
  Transmission Date: 20150721
  Serious: Yes (Other)
  Sender: FDA-Public Use
  Company Number: IT-ASTRAZENECA-2014SE78640

PATIENT
  Age: 26140 Day
  Sex: Male
  Weight: 85 kg

DRUGS (3)
  1. BRILIQUE [Suspect]
     Active Substance: TICAGRELOR
     Indication: ANTICOAGULANT THERAPY
     Route: 048
     Dates: start: 20131001, end: 20141001
  2. CONGESCOR [Concomitant]
     Active Substance: BISOPROLOL
     Route: 048
     Dates: start: 20131001, end: 20141001
  3. BRILIQUE [Suspect]
     Active Substance: TICAGRELOR
     Indication: ACUTE CORONARY SYNDROME
     Route: 048
     Dates: start: 20131001, end: 20141001

REACTIONS (1)
  - Sinus arrest [Recovered/Resolved]

NARRATIVE: CASE EVENT DATE: 20141001
